FAERS Safety Report 8993165 (Version 4)
Quarter: 2013Q2

REPORT INFORMATION
  Report Type: Spontaneous
  Country: IT (occurrence: IT)
  Receive Date: 20130102
  Receipt Date: 20130517
  Transmission Date: 20140414
  Serious: Yes (Hospitalization, Other)
  Sender: FDA-Public Use
  Company Number: IT-JNJFOC-20121213385

PATIENT
  Age: 55 Year
  Sex: Female
  Weight: 60 kg

DRUGS (7)
  1. TOPAMAX [Suspect]
     Indication: BULIMIA NERVOSA
     Route: 048
  2. TOPAMAX [Suspect]
     Indication: BULIMIA NERVOSA
     Route: 048
     Dates: start: 20121226, end: 20121226
  3. FLUOXETINA [Suspect]
     Indication: SELF INJURIOUS BEHAVIOUR
     Route: 048
     Dates: start: 20121226, end: 20121226
  4. EN [Suspect]
     Indication: ANXIETY
     Route: 048
  5. TRITTICO [Concomitant]
     Indication: DEPRESSION
     Route: 048
  6. EUTIROX [Concomitant]
     Indication: HYPOTHYROIDISM
     Route: 048
  7. OMEPRAZOLE [Concomitant]
     Indication: PRODUCT USED FOR UNKNOWN INDICATION
     Route: 048

REACTIONS (2)
  - Self injurious behaviour [Recovered/Resolved]
  - Intentional overdose [Unknown]
